FAERS Safety Report 16295428 (Version 1)
Quarter: 2019Q2

REPORT INFORMATION
  Report Type: Spontaneous
  Country: US (occurrence: US)
  Receive Date: 20190509
  Receipt Date: 20190509
  Transmission Date: 20190711
  Serious: No
  Sender: FDA-Public Use
  Company Number: US-ALKERMES INC.-ALK-2018-004983

PATIENT
  Age: 38 Year
  Sex: Female

DRUGS (1)
  1. VIVITROL [Suspect]
     Active Substance: NALTREXONE
     Indication: DRUG USE DISORDER
     Dosage: 380 MG, QMO
     Route: 030

REACTIONS (7)
  - Restlessness [Unknown]
  - Fatigue [Unknown]
  - Hot flush [Unknown]
  - Muscle spasms [Unknown]
  - Depressed mood [Recovered/Resolved]
  - Feeling jittery [Unknown]
  - Panic attack [Recovered/Resolved]
